FAERS Safety Report 8949339 (Version 2)
Quarter: 2013Q1

REPORT INFORMATION
  Report Type: Spontaneous
  Country: DE (occurrence: DE)
  Receive Date: 20121206
  Receipt Date: 20130115
  Transmission Date: 20140127
  Serious: Yes (Death)
  Sender: FDA-Public Use
  Company Number: PHHY2012DE112191

PATIENT
  Age: 87 Year
  Sex: Male

DRUGS (12)
  1. ACETYLSALICYLIC ACID [Suspect]
     Indication: MYOCARDIAL INFARCTION
     Dosage: 100 MG, PER DAY
  2. ESCITALOPRAM [Suspect]
     Indication: PANIC DISORDER
  3. CITALOPRAM [Suspect]
     Indication: PANIC DISORDER
     Dosage: 20 MG, PER DAY
  4. OLANZAPINE [Concomitant]
     Dosage: 5 MG, UNK
  5. ZOPICLONE [Concomitant]
     Dosage: 7.5 MG, UNK
  6. NITRENDIPINE [Concomitant]
     Dosage: 20 MG, UNK
  7. BISOPROLOL [Concomitant]
     Dosage: 5 MG, UNK
  8. LISINOPRIL/HYDROCHLOROTHIAZIDE [Concomitant]
     Dosage: 20/12.5 MG PER DAY
  9. BUPRENORPHINE [Concomitant]
     Dosage: 20 UG/HR, UNK
  10. VITAMIN B12 [Concomitant]
     Dosage: 1000 UG, WEEKLY
  11. PREGABALIN [Concomitant]
     Dosage: 150 MG, UNK
  12. LACTULOSE [Concomitant]
     Dosage: 10 ML, UNK

REACTIONS (8)
  - Gastrointestinal haemorrhage [Fatal]
  - Haemorrhagic anaemia [Fatal]
  - Faeces discoloured [Fatal]
  - Myocardial infarction [Fatal]
  - Pallor [Fatal]
  - Dyspnoea [Fatal]
  - Ventricular hypokinesia [Fatal]
  - Chest pain [Fatal]
